FAERS Safety Report 20761546 (Version 1)
Quarter: 2022Q2

REPORT INFORMATION
  Report Type: Report from Study
  Country: CA (occurrence: CA)
  Receive Date: 20220428
  Receipt Date: 20220428
  Transmission Date: 20220720
  Serious: Yes (Other)
  Sender: FDA-Public Use
  Company Number: CA-NOVARTISPH-NVSC2021CA252763

PATIENT
  Sex: Male

DRUGS (2)
  1. HYRIMOZ [Suspect]
     Active Substance: ADALIMUMAB-ADAZ
     Indication: Colitis ulcerative
     Dosage: 40 MG
     Route: 058
     Dates: start: 20210714
  2. HYRIMOZ [Suspect]
     Active Substance: ADALIMUMAB-ADAZ
     Dosage: 40 MG, BIW
     Route: 065
     Dates: start: 20220413

REACTIONS (8)
  - Anorectal disorder [Unknown]
  - Colitis ulcerative [Unknown]
  - Diarrhoea [Unknown]
  - Frustration tolerance decreased [Unknown]
  - Rash macular [Unknown]
  - Skin irritation [Unknown]
  - Injection site pain [Unknown]
  - Product dose omission issue [Unknown]
